FAERS Safety Report 8565628 (Version 2)
Quarter: 2013Q2

REPORT INFORMATION
  Report Type: Report from Study
  Country: JP (occurrence: JP)
  Receive Date: 20120516
  Receipt Date: 20130409
  Transmission Date: 20140414
  Serious: Yes (Death)
  Sender: FDA-Public Use
  Company Number: JP-GLAXOSMITHKLINE-B0801222A

PATIENT
  Age: 68 Year
  Sex: Female
  Weight: 66 kg

DRUGS (10)
  1. REVOLADE [Suspect]
     Indication: IDIOPATHIC THROMBOCYTOPENIC PURPURA
     Dosage: 25MG PER DAY
     Route: 048
     Dates: start: 20120328, end: 20120411
  2. VALTREX [Concomitant]
     Indication: PROPHYLAXIS
     Dosage: 125MG THREE TIMES PER WEEK
     Route: 048
  3. DIFLUCAN [Concomitant]
     Dosage: 50MG THREE TIMES PER WEEK
     Route: 048
  4. BAKTAR [Concomitant]
     Dosage: 100MG THREE TIMES PER WEEK
     Route: 048
  5. TAKEPRON [Concomitant]
     Dosage: 30MG PER DAY
     Route: 048
  6. PREDNISOLONE [Concomitant]
     Indication: IDIOPATHIC THROMBOCYTOPENIC PURPURA
     Dosage: 15MG PER DAY
     Route: 048
  7. CEPHARANTHINE [Concomitant]
     Dosage: 2MG THREE TIMES PER DAY
     Route: 048
  8. CALTAN [Concomitant]
     Route: 048
  9. ONEALFA [Concomitant]
     Route: 048
  10. POLARAMINE [Concomitant]
     Route: 048

REACTIONS (3)
  - Anaemia [Fatal]
  - Circulatory collapse [Fatal]
  - Haemodialysis complication [Fatal]
